FAERS Safety Report 13159374 (Version 3)
Quarter: 2017Q1

REPORT INFORMATION
  Report Type: Spontaneous
  Country: JP (occurrence: JP)
  Receive Date: 20170127
  Receipt Date: 20170320
  Transmission Date: 20170428
  Serious: Yes (Other)
  Sender: FDA-Public Use
  Company Number: JP-JNJFOC-20170125078

PATIENT
  Age: 83 Year
  Sex: Male

DRUGS (6)
  1. TRAMAL [Suspect]
     Active Substance: TRAMADOL
     Indication: BACK PAIN
     Route: 048
  2. FLUCAM [Concomitant]
     Active Substance: AMPIROXICAM
     Route: 065
  3. TRAMAL [Suspect]
     Active Substance: TRAMADOL
     Indication: NEURALGIA
     Route: 048
     Dates: start: 20161220
  4. TRAMAL [Suspect]
     Active Substance: TRAMADOL
     Indication: BACK PAIN
     Route: 048
     Dates: start: 20161220
  5. TRAMAL [Suspect]
     Active Substance: TRAMADOL
     Indication: NEURALGIA
     Route: 048
  6. VITACAIN [Concomitant]
     Route: 065
     Dates: start: 20151128

REACTIONS (1)
  - Loss of consciousness [Recovered/Resolved]

NARRATIVE: CASE EVENT DATE: 20161220
